FAERS Safety Report 21411277 (Version 1)
Quarter: 2022Q4

REPORT INFORMATION
  Report Type: Spontaneous
  Country: CA (occurrence: CA)
  Receive Date: 20221005
  Receipt Date: 20221005
  Transmission Date: 20230113
  Serious: Yes (Other)
  Sender: FDA-Public Use
  Company Number: CA-GLAXOSMITHKLINE-CA2022AMR140668

PATIENT

DRUGS (2)
  1. ZEJULA [Suspect]
     Active Substance: NIRAPARIB
     Indication: Ovarian cancer
     Dosage: 200 MG
     Dates: start: 20220803, end: 20220812
  2. ACETAZOLAMIDE [Suspect]
     Active Substance: ACETAZOLAMIDE
     Indication: Product used for unknown indication
     Dosage: 500 MG, BID
     Dates: start: 20220826

REACTIONS (8)
  - Papilloedema [Unknown]
  - Blindness [Unknown]
  - Thrombosis [Unknown]
  - Vision blurred [Unknown]
  - Visual impairment [Unknown]
  - Headache [Unknown]
  - Blood pressure increased [Unknown]
  - Visual acuity reduced [Unknown]
